FAERS Safety Report 17718288 (Version 1)
Quarter: 2020Q2

REPORT INFORMATION
  Report Type: Spontaneous
  Country: FI (occurrence: FI)
  Receive Date: 20200428
  Receipt Date: 20200428
  Transmission Date: 20200714
  Serious: Yes (Hospitalization, Disabling)
  Sender: FDA-Public Use
  Company Number: FI-ELI_LILLY_AND_COMPANY-FI202004006280

PATIENT
  Age: 44 Year
  Sex: Male

DRUGS (10)
  1. OLANZAPINE. [Suspect]
     Active Substance: OLANZAPINE
     Indication: INSOMNIA
     Dosage: UNK, UNKNOWN
     Route: 048
  2. ESCITALOPRAM [Suspect]
     Active Substance: ESCITALOPRAM OXALATE
     Indication: DEPRESSION
     Dosage: 5 MG, UNKNOWN
     Route: 048
     Dates: start: 20191227, end: 20200114
  3. TOLVON [Suspect]
     Active Substance: MIANSERIN
     Indication: INSOMNIA
     Dosage: 30 MG, UNKNOWN
     Route: 048
     Dates: start: 20200128, end: 20200218
  4. MIRTAZAPINE. [Suspect]
     Active Substance: MIRTAZAPINE
     Indication: INSOMNIA
     Dosage: 7.5 MG, UNKNOWN
     Route: 048
     Dates: start: 20191227, end: 20200128
  5. BUVIDAL 16 MG INJEKTIONSV?TSKA, DEPOTL?SNING [Suspect]
     Active Substance: BUPRENORPHINE
     Indication: PRODUCT USED FOR UNKNOWN INDICATION
     Dosage: UNK, WEEKLY (1/W)
     Route: 065
     Dates: start: 2019
  6. TENOX [TEMAZEPAM] [Concomitant]
     Indication: INSOMNIA
     Dosage: UNK, UNKNOWN
     Route: 065
  7. MELATONINE [Concomitant]
     Active Substance: MELATONIN
     Indication: PRODUCT USED FOR UNKNOWN INDICATION
     Dosage: UNK, UNKNOWN
     Route: 065
  8. DULOXETINE HYDROCHLORIDE. [Suspect]
     Active Substance: DULOXETINE HYDROCHLORIDE
     Indication: DEPRESSION
     Dosage: 90 MG, UNKNOWN
     Route: 048
     Dates: start: 20200128
  9. BUVIDAL 16 MG INJEKTIONSV?TSKA, DEPOTL?SNING [Suspect]
     Active Substance: BUPRENORPHINE
     Dosage: 96 MG, EVERY 4 WEEKS
     Route: 065
  10. KETIPINOR [Suspect]
     Active Substance: QUETIAPINE FUMARATE
     Indication: INSOMNIA
     Dosage: 150 MG, UNKNOWN
     Route: 048

REACTIONS (16)
  - Peripheral swelling [Recovering/Resolving]
  - Pruritus [Unknown]
  - Weight increased [Unknown]
  - Abdominal pain upper [Unknown]
  - Withdrawal syndrome [Unknown]
  - Wheezing [Unknown]
  - Erythema [Unknown]
  - Hypersensitivity [Unknown]
  - Bile duct stone [Unknown]
  - Musculoskeletal stiffness [Unknown]
  - Dyspnoea [Unknown]
  - Alanine aminotransferase increased [Unknown]
  - Oedema [Unknown]
  - Gamma-glutamyltransferase increased [Unknown]
  - Abdominal distension [Unknown]
  - Fatigue [Unknown]

NARRATIVE: CASE EVENT DATE: 201912
